FAERS Safety Report 24366258 (Version 1)
Quarter: 2024Q3

REPORT INFORMATION
  Report Type: Spontaneous
  Country: AU (occurrence: AU)
  Receive Date: 20240926
  Receipt Date: 20240926
  Transmission Date: 20241016
  Serious: Yes (Other)
  Sender: PFIZER
  Company Number: AU-PFIZER INC-PV202400123738

PATIENT
  Age: 12 Year
  Sex: Male
  Weight: 90 kg

DRUGS (7)
  1. INFLIXIMAB [Suspect]
     Active Substance: INFLIXIMAB
     Indication: Colitis ulcerative
     Dosage: UNK
     Dates: start: 20240502
  2. INFLIXIMAB [Suspect]
     Active Substance: INFLIXIMAB
     Dosage: 700 MG, 6 WEEKLY
  3. INFLIXIMAB [Suspect]
     Active Substance: INFLIXIMAB
     Dosage: 800 MG AT THE 4 WEEKS MARK FROM HIS LAST INFUSION (700MG)
  4. METHOTREXATE SODIUM [Suspect]
     Active Substance: METHOTREXATE SODIUM
     Dosage: 25 MG, WEEKLY
     Dates: start: 20240502
  5. FOLIC ACID [Concomitant]
     Active Substance: FOLIC ACID
     Dosage: UNK
  6. MESALAMINE [Concomitant]
     Active Substance: MESALAMINE
     Dosage: 4 G, DAILY
  7. BUDESONIDE [Concomitant]
     Active Substance: BUDESONIDE
     Dosage: 2 G, DAILY
     Route: 054

REACTIONS (3)
  - Condition aggravated [Unknown]
  - Anaemia [Unknown]
  - Drug level decreased [Unknown]
